FAERS Safety Report 6923224-8 (Version None)
Quarter: 2010Q3

REPORT INFORMATION
  Report Type: 
  Country: None (occurrence: None)
  Receive Date: 20100813
  Receipt Date: 20100809
  Transmission Date: 20110219
  Serious: Yes (Death, Hospitalization)
  Sender: FDA-Public Use
  Company Number: IN-ROCHE-715212

PATIENT
  Sex: Male

DRUGS (4)
  1. MYCOPHENOLATE MOFETIL [Suspect]
     Route: 065
     Dates: start: 20070220, end: 20100721
  2. CYCLOSPORINE [Suspect]
     Route: 048
     Dates: start: 20070221, end: 20100721
  3. PREDNISOLONE [Suspect]
     Route: 065
     Dates: start: 20070221, end: 20100721
  4. SHELCAL [Concomitant]
     Dates: start: 20070227, end: 20100721

REACTIONS (3)
  - CARDIO-RESPIRATORY ARREST [None]
  - PANCREATITIS [None]
  - PNEUMONITIS [None]
